FAERS Safety Report 7596469-4 (Version None)
Quarter: 2011Q3

REPORT INFORMATION
  Report Type: 
  Country: None (occurrence: None)
  Receive Date: 20110708
  Receipt Date: 20110630
  Transmission Date: 20111222
  Serious: Yes (Other)
  Sender: FDA-Public Use
  Company Number: US-BIOGENIDEC-2010BI030887

PATIENT
  Age: 43 Year
  Sex: Female

DRUGS (4)
  1. TOPAMAX [Concomitant]
     Indication: CONVULSION
     Dates: end: 20100801
  2. AVONEX [Suspect]
     Route: 030
     Dates: start: 20060201
  3. AVONEX [Suspect]
     Route: 030
     Dates: start: 20100301
  4. AVONEX [Suspect]
     Indication: MULTIPLE SCLEROSIS
     Route: 030
     Dates: start: 20100301

REACTIONS (3)
  - TRANSIENT ISCHAEMIC ATTACK [None]
  - MYOCARDIAL INFARCTION [None]
  - CONVULSION [None]
